FAERS Safety Report 5259523-8 (Version None)
Quarter: 2007Q1

REPORT INFORMATION
  Report Type: 
  Country: None (occurrence: None)
  Receive Date: 20070306
  Receipt Date: 20070221
  Transmission Date: 20070707
  Serious: Yes (Death)
  Sender: FDA-Public Use
  Company Number: 2007S1000155

PATIENT
  Age: 15 Year
  Sex: Male

DRUGS (10)
  1. CUBICIN [Suspect]
     Indication: STAPHYLOCOCCAL INFECTION
  2. VANCOMYCIN [Concomitant]
  3. CEFTRIAXONE [Concomitant]
  4. DOPAMINE HCL [Concomitant]
  5. NOREPINEPHRINE BITARTRATE [Concomitant]
  6. EPINEPHRINE [Concomitant]
  7. PITRESSIN [Concomitant]
  8. STRESS-DOSE STEROIDS [Concomitant]
  9. LINEZOLID [Concomitant]
  10. NAPROXEN [Concomitant]

REACTIONS (1)
  - MULTI-ORGAN FAILURE [None]
